FAERS Safety Report 11559540 (Version 1)
Quarter: 2015Q3

REPORT INFORMATION
  Report Type: Spontaneous
  Country: US (occurrence: US)
  Receive Date: 20150916
  Receipt Date: 20150916
  Transmission Date: 20151125
  Serious: No
  Sender: FDA-Public Use
  Company Number: US-ELI_LILLY_AND_COMPANY-US200808003902

PATIENT
  Sex: Female

DRUGS (1)
  1. FORTEO [Suspect]
     Active Substance: TERIPARATIDE
     Dates: start: 20080609

REACTIONS (5)
  - Weight decreased [Recovered/Resolved]
  - Vomiting [Recovering/Resolving]
  - Herpes zoster [Not Recovered/Not Resolved]
  - Decreased appetite [Recovered/Resolved]
  - Laboratory test [Unknown]

NARRATIVE: CASE EVENT DATE: 200806
